FAERS Safety Report 5230907-7 (Version None)
Quarter: 2007Q1

REPORT INFORMATION
  Report Type: 
  Country: None (occurrence: None)
  Receive Date: 20070206
  Receipt Date: 20070131
  Transmission Date: 20070707
  Serious: Yes (Other)
  Sender: FDA-Public Use
  Company Number: GB-GLAXOSMITHKLINE-B0359806A

PATIENT
  Sex: Male

DRUGS (4)
  1. SEROXAT [Suspect]
     Indication: ANXIETY
     Dosage: 20MG PER DAY
     Route: 065
     Dates: start: 20001020, end: 20041201
  2. CITALOPRAM [Concomitant]
     Route: 065
  3. DIAZEPAM [Concomitant]
  4. OLANZAPINE [Concomitant]
     Dates: start: 20050317

REACTIONS (11)
  - AGGRESSION [None]
  - CONVULSION [None]
  - DEREALISATION [None]
  - DIZZINESS [None]
  - DRUG WITHDRAWAL SYNDROME [None]
  - FATIGUE [None]
  - FLASHBACK [None]
  - MALAISE [None]
  - NAUSEA [None]
  - PHOTOSENSITIVITY REACTION [None]
  - SUICIDAL IDEATION [None]
